FAERS Safety Report 6372569-1 (Version None)
Quarter: 2009Q3

REPORT INFORMATION
  Report Type: 
  Country: None (occurrence: None)
  Receive Date: 20090924
  Receipt Date: 20081020
  Transmission Date: 20100115
  Serious: Yes (Other)
  Sender: FDA-Public Use
  Company Number: US-ASTRAZENECA-2008UW18965

PATIENT
  Sex: Female

DRUGS (3)
  1. SEROQUEL [Suspect]
     Dosage: 50MG DAY 1, 100MG DAY 2, 200MG DAY 3, 300MG DAY 4
     Route: 048
  2. XANAX [Concomitant]
     Indication: ANXIETY
     Route: 048
     Dates: start: 20080901
  3. FLEXERIL [Concomitant]
     Indication: MUSCLE SPASMS
     Route: 048
     Dates: start: 20080905

REACTIONS (2)
  - CONVULSION [None]
  - HYPOAESTHESIA FACIAL [None]
